FAERS Safety Report 5662839-4 (Version None)
Quarter: 2008Q1

REPORT INFORMATION
  Report Type: 
  Country: None (occurrence: None)
  Receive Date: 20080313
  Receipt Date: 20080228
  Transmission Date: 20080703
  Serious: Yes (Death, Other)
  Sender: FDA-Public Use
  Company Number: CA-PURDUE-CAN_2008_0000532

PATIENT
  Age: 50 Year
  Sex: Male

DRUGS (7)
  1. MS CONTIN [Suspect]
  2. AMITRIPTYLINE HCL [Suspect]
     Indication: DRUG USE FOR UNKNOWN INDICATION
  3. BUPROPION HCL [Suspect]
     Indication: DRUG USE FOR UNKNOWN INDICATION
  4. DIPHENHYDRAMINE HCL [Suspect]
     Indication: DRUG USE FOR UNKNOWN INDICATION
  5. ETHANOL [Suspect]
     Indication: DRUG USE FOR UNKNOWN INDICATION
  6. NORTRIPTYLINE HCL [Suspect]
     Indication: DRUG USE FOR UNKNOWN INDICATION
  7. OXAZEPAM [Suspect]
     Indication: DRUG USE FOR UNKNOWN INDICATION

REACTIONS (3)
  - COMPLETED SUICIDE [None]
  - DRUG DEPENDENCE [None]
  - DRUG LEVEL INCREASED [None]
